FAERS Safety Report 12374467 (Version 1)
Quarter: 2016Q2

REPORT INFORMATION
  Report Type: Spontaneous
  Country: US (occurrence: None)
  Receive Date: 20160516
  Receipt Date: 20160516
  Transmission Date: 20160815
  Serious: Yes (Life-Threatening)
  Sender: FDA-Public Use
  Company Number: None

PATIENT
  Age: 79 Year
  Sex: Female
  Weight: 49.44 kg

DRUGS (5)
  1. ASPIRIN. [Concomitant]
     Active Substance: ASPIRIN
  2. NIACIN. [Concomitant]
     Active Substance: NIACIN
  3. LEVOTHOROXAN [Concomitant]
  4. SYMVASTATIN [Concomitant]
  5. MUCINEX [Suspect]
     Active Substance: GUAIFENESIN
     Indication: LOWER RESPIRATORY TRACT CONGESTION
     Route: 048
     Dates: start: 20160513, end: 20160514

REACTIONS (3)
  - Drug ineffective [None]
  - Anxiety [None]
  - Blood pressure decreased [None]

NARRATIVE: CASE EVENT DATE: 20160514
